FAERS Safety Report 9535966 (Version 1)
Quarter: 2013Q3

REPORT INFORMATION
  Report Type: Spontaneous
  Country: US (occurrence: None)
  Receive Date: 20130917
  Receipt Date: 20130917
  Transmission Date: 20140515
  Serious: Yes (Disabling)
  Sender: FDA-Public Use
  Company Number: None

PATIENT
  Age: 64 Year
  Sex: Female
  Weight: 71.67 kg

DRUGS (1)
  1. MINOCYCLINE [Suspect]
     Indication: ACNE
     Dosage: 1 CAPSULE, ONCE DAILY, TAKEN BY MOUTH
     Route: 048
     Dates: start: 20130802, end: 20130828

REACTIONS (8)
  - Haemorrhage [None]
  - Laceration [None]
  - Arthralgia [None]
  - Dry skin [None]
  - Myalgia [None]
  - Dyspnoea [None]
  - Pruritus [None]
  - Rash [None]
